FAERS Safety Report 23229648 (Version 1)
Quarter: 2023Q4

REPORT INFORMATION
  Report Type: Spontaneous
  Country: IN (occurrence: IN)
  Receive Date: 20231127
  Receipt Date: 20231127
  Transmission Date: 20240110
  Serious: Yes (Hospitalization)
  Sender: FDA-Public Use
  Company Number: IN-EPICPHARMA-IN-2023EPCLIT01783

PATIENT
  Age: 4 Year
  Sex: Male

DRUGS (8)
  1. LEVETIRACETAM [Suspect]
     Active Substance: LEVETIRACETAM
     Indication: Irritability
     Route: 042
  2. LEVETIRACETAM [Suspect]
     Active Substance: LEVETIRACETAM
     Indication: Eye movement disorder
  3. LEVETIRACETAM [Suspect]
     Active Substance: LEVETIRACETAM
     Indication: Gait inability
  4. LEVETIRACETAM [Suspect]
     Active Substance: LEVETIRACETAM
     Indication: Balance disorder
  5. LEVETIRACETAM [Suspect]
     Active Substance: LEVETIRACETAM
     Indication: Confusional state
  6. PHENYTOIN [Suspect]
     Active Substance: PHENYTOIN
     Indication: Seizure prophylaxis
     Route: 042
  7. CEFIXIME [Concomitant]
     Active Substance: CEFIXIME
     Indication: Product used for unknown indication
     Route: 065
  8. PARACETAMOL AND IBUPROFEN [Concomitant]
     Indication: Product used for unknown indication
     Route: 065

REACTIONS (6)
  - Eye movement disorder [Unknown]
  - Confusional state [Unknown]
  - Condition aggravated [Unknown]
  - Irritability [Unknown]
  - Gait inability [Unknown]
  - Balance disorder [Unknown]
